FAERS Safety Report 11744386 (Version 1)
Quarter: 2015Q4

REPORT INFORMATION
  Report Type: Spontaneous
  Country: DE (occurrence: DE)
  Receive Date: 20151116
  Receipt Date: 20151116
  Transmission Date: 20160304
  Serious: Yes (Other)
  Sender: FDA-Public Use
  Company Number: DE-PFIZER INC-2015384723

PATIENT
  Sex: Female

DRUGS (2)
  1. RAMILICH [Suspect]
     Active Substance: RAMIPRIL
     Dosage: 5 MG, UNK
  2. NITRENDIPINE [Suspect]
     Active Substance: NITRENDIPINE
     Dosage: UNK

REACTIONS (23)
  - Incontinence [Unknown]
  - Muscle spasms [Unknown]
  - Sleep disorder [Unknown]
  - Malaise [Unknown]
  - Erythema [Unknown]
  - Dyspnoea [Unknown]
  - Restlessness [Unknown]
  - Hyperhidrosis [Unknown]
  - Skin warm [Unknown]
  - Cough [Unknown]
  - Myalgia [Unknown]
  - Vision blurred [Unknown]
  - Dizziness [Unknown]
  - Fatigue [Unknown]
  - Vertigo [Unknown]
  - Productive cough [Unknown]
  - Depressed mood [Unknown]
  - Arthralgia [Unknown]
  - Choking [Unknown]
  - Anxiety [Unknown]
  - Dry mouth [Unknown]
  - Intestinal obstruction [Unknown]
  - Vomiting [Unknown]
